FAERS Safety Report 12486640 (Version 6)
Quarter: 2017Q3

REPORT INFORMATION
  Report Type: Report from Study
  Country: US (occurrence: US)
  Receive Date: 20160621
  Receipt Date: 20170728
  Transmission Date: 20171127
  Serious: Yes (Hospitalization, Other)
  Sender: FDA-Public Use
  Company Number: US-ACTELION-A-NJ2016-138089

PATIENT
  Age: 62 Year
  Sex: Female

DRUGS (1)
  1. OPSUMIT [Suspect]
     Active Substance: MACITENTAN
     Indication: PULMONARY ARTERIAL HYPERTENSION
     Dosage: 10 MG, QD
     Route: 048
     Dates: start: 20140916

REACTIONS (15)
  - Tooth infection [Recovered/Resolved]
  - Gastroenteritis Escherichia coli [Recovered/Resolved]
  - Tooth extraction [Unknown]
  - Anaemia [Not Recovered/Not Resolved]
  - Dizziness [Unknown]
  - Pyrexia [Unknown]
  - Drug hypersensitivity [Unknown]
  - Tooth abscess [Recovered/Resolved]
  - Bursitis [Not Recovered/Not Resolved]
  - Palpitations [Unknown]
  - Cellulitis [Recovered/Resolved]
  - Osteonecrosis [Unknown]
  - Sepsis [Unknown]
  - Chills [Unknown]
  - Cough [Unknown]

NARRATIVE: CASE EVENT DATE: 20141117
